FAERS Safety Report 18349108 (Version 1)
Quarter: 2020Q4

REPORT INFORMATION
  Report Type: Spontaneous
  Country: ZA (occurrence: ZA)
  Receive Date: 20201006
  Receipt Date: 20201006
  Transmission Date: 20210114
  Serious: Yes (Death, Hospitalization)
  Sender: FDA-Public Use
  Company Number: ZA-COEPTIS PHARMACEUTICALS, INC.-COE-2020-000047

PATIENT
  Age: 18 Year
  Sex: Female

DRUGS (2)
  1. AMLODIPINE [Suspect]
     Active Substance: AMLODIPINE BESYLATE
     Dosage: 250 MG
  2. HIGH DOSE EUGLYCAEMIC THERAPY [Suspect]
     Active Substance: INSULIN NOS
     Dosage: 3 IU/KG/HOUR AND TITRATED UP TO 10 IU/KG/HOUR, LATER WEANED TO 1.5 IU/KG/HOUR

REACTIONS (8)
  - Hypoosmolar state [Recovering/Resolving]
  - Hypotension [Recovering/Resolving]
  - Sepsis [None]
  - Hyponatraemia [Recovering/Resolving]
  - Pulmonary oedema [Unknown]
  - Intentional overdose [Unknown]
  - Hypovolaemia [Recovering/Resolving]
  - Depressed level of consciousness [Unknown]
